FAERS Safety Report 23268189 (Version 1)
Quarter: 2023Q4

REPORT INFORMATION
  Report Type: Spontaneous
  Country: JP (occurrence: JP)
  Receive Date: 20231206
  Receipt Date: 20231206
  Transmission Date: 20240110
  Serious: Yes (Other)
  Sender: FDA-Public Use
  Company Number: JP-MLMSERVICE-20231127-4691294-1

PATIENT
  Age: 55 Year
  Sex: Male

DRUGS (2)
  1. MINOXIDIL [Suspect]
     Active Substance: MINOXIDIL
     Indication: Product used for unknown indication
     Dosage: COULD NOT RECALL WHETHER THE AMOUNT OF TOPICAL MINOXIDIL USED HAD CHANGED. FUNDAMENTALLY APPLIED THE
     Route: 061
     Dates: start: 201401, end: 201408
  2. CLOPIDOGREL [Concomitant]
     Active Substance: CLOPIDOGREL BISULFATE
     Indication: Cerebral infarction
     Dosage: UNK
     Route: 065
     Dates: start: 201304, end: 2015

REACTIONS (3)
  - Idiopathic interstitial pneumonia [Recovering/Resolving]
  - Granuloma [Recovering/Resolving]
  - Prescription drug used without a prescription [Recovered/Resolved]

NARRATIVE: CASE EVENT DATE: 20140101
